FAERS Safety Report 5707679-2 (Version None)
Quarter: 2008Q2

REPORT INFORMATION
  Report Type: 
  Country: None (occurrence: None)
  Receive Date: 20080415
  Receipt Date: 20080408
  Transmission Date: 20081010
  Serious: Yes (Other)
  Sender: FDA-Public Use
  Company Number: 2008008864

PATIENT
  Age: 80 Year
  Sex: Female
  Weight: 47.1741 kg

DRUGS (1)
  1. NEOSPORIN [Suspect]
     Indication: LOCALISED INFECTION
     Dosage: 4 DABS 2X PER DAY (2 IN 1D), TOPICAL
     Route: 061
     Dates: start: 20080404

REACTIONS (3)
  - DRUG INEFFECTIVE [None]
  - POOR PERIPHERAL CIRCULATION [None]
  - PRURITUS [None]
